FAERS Safety Report 11314797 (Version 1)
Quarter: 2015Q3

REPORT INFORMATION
  Report Type: Spontaneous
  Country: US (occurrence: US)
  Receive Date: 20150727
  Receipt Date: 20150727
  Transmission Date: 20151125
  Serious: No
  Sender: FDA-Public Use
  Company Number: US-GLAXOSMITHKLINE-US2015106455

PATIENT
  Age: 80 Year

DRUGS (5)
  1. CASODEX [Concomitant]
     Active Substance: BICALUTAMIDE
  2. ZETIA [Concomitant]
     Active Substance: EZETIMIBE
  3. AMLODIPINE [Concomitant]
     Active Substance: AMLODIPINE BESYLATE
  4. LISINOPRIL. [Concomitant]
     Active Substance: LISINOPRIL
  5. AVODART [Suspect]
     Active Substance: DUTASTERIDE
     Indication: HORMONE THERAPY
     Dosage: 0.5 MG, QD
     Route: 048
     Dates: start: 20150722

REACTIONS (1)
  - Dizziness [Not Recovered/Not Resolved]

NARRATIVE: CASE EVENT DATE: 20150724
